FAERS Safety Report 9391500 (Version 1)
Quarter: 2013Q3

REPORT INFORMATION
  Report Type: Spontaneous
  Country: US (occurrence: None)
  Receive Date: 20130705
  Receipt Date: 20130705
  Transmission Date: 20140515
  Serious: Yes (Life-Threatening, Other)
  Sender: FDA-Public Use
  Company Number: 2013P1010836

PATIENT
  Age: 62 Year
  Sex: Female

DRUGS (3)
  1. ZOLPIDEM [Suspect]
     Indication: INSOMNIA
  2. PAROXETINE [Suspect]
     Indication: DEPRESSION
  3. PAROXETINE [Suspect]
     Indication: ANXIETY

REACTIONS (11)
  - Homicide [None]
  - Confusional state [None]
  - Suicide attempt [None]
  - Laceration [None]
  - Delirium [None]
  - Disorientation [None]
  - Consciousness fluctuating [None]
  - Memory impairment [None]
  - Major depression [None]
  - Agitation [None]
  - Dissociative disorder [None]
